FAERS Safety Report 8118563-1 (Version None)
Quarter: 2012Q1

REPORT INFORMATION
  Report Type: 
  Country: None (occurrence: None)
  Receive Date: 20120207
  Receipt Date: 20120202
  Transmission Date: 20120608
  Serious: No
  Sender: FDA-Public Use
  Company Number: US-PFIZER INC-2012029490

PATIENT
  Sex: Female
  Weight: 67.574 kg

DRUGS (14)
  1. MAGNESIUM [Concomitant]
     Dosage: UNK
  2. TOVIAZ [Suspect]
     Indication: HYPERTONIC BLADDER
     Dosage: UNK, 1X/DAY
     Route: 048
     Dates: start: 20120126
  3. GABAPENTIN [Concomitant]
     Indication: PAIN
     Dosage: 300 MG, 3X/DAY
  4. CEPHALEXIN [Concomitant]
     Indication: CYSTITIS
     Dosage: 500 MG, UNK
  5. CARVEDILOL [Concomitant]
     Indication: CARDIAC DISORDER
     Dosage: UNK, 2X/DAY
  6. LEVOTHYROXINE [Concomitant]
     Indication: HYPOTHYROIDISM
     Dosage: 75 UG, UNK
  7. ASCORBIC ACID [Concomitant]
     Dosage: UNK
  8. VITAMIN D [Concomitant]
     Dosage: UNK
  9. CALCIUM [Concomitant]
     Dosage: UNK
  10. LOVAZA [Concomitant]
     Dosage: UNK
  11. METFORMIN [Concomitant]
     Indication: DIABETES MELLITUS
     Dosage: 1000 MG, 2X/DAY
  12. SIMVASTATIN [Concomitant]
     Indication: BLOOD CHOLESTEROL INCREASED
     Dosage: UNK
  13. AVAPRO [Concomitant]
     Indication: CARDIAC DISORDER
     Dosage: 75 MG, UNK
  14. VITAMIN B-12 [Concomitant]
     Dosage: UNK

REACTIONS (1)
  - URINARY INCONTINENCE [None]
